FAERS Safety Report 22309316 (Version 1)
Quarter: 2023Q2

REPORT INFORMATION
  Report Type: Spontaneous
  Country: DE (occurrence: DE)
  Receive Date: 20230511
  Receipt Date: 20230511
  Transmission Date: 20230722
  Serious: Yes (Other)
  Sender: FDA-Public Use
  Company Number: DE-HBP-2023DE028830

PATIENT
  Age: 40 Year
  Sex: Female

DRUGS (5)
  1. MECHLORETHAMINE HYDROCHLORIDE [Suspect]
     Active Substance: MECHLORETHAMINE HYDROCHLORIDE
     Indication: Cutaneous T-cell lymphoma stage I
     Dosage: UNK, QOD ON BODY AREAS FOR MF
     Route: 061
     Dates: start: 202106
  2. MECHLORETHAMINE HYDROCHLORIDE [Suspect]
     Active Substance: MECHLORETHAMINE HYDROCHLORIDE
     Dosage: UNK, ON BODY AREAS AND ON FACIAL PATCHES EVERY SECOND DAY ALTERNATING WITH STEROIDS
     Route: 061
     Dates: start: 202108
  3. MECHLORETHAMINE HYDROCHLORIDE [Suspect]
     Active Substance: MECHLORETHAMINE HYDROCHLORIDE
     Dosage: UNK, ON BODY AREAS
     Route: 061
     Dates: start: 202108
  4. MECHLORETHAMINE HYDROCHLORIDE [Suspect]
     Active Substance: MECHLORETHAMINE HYDROCHLORIDE
     Dosage: UNK, ON BODY AND FACIAL AREAS
     Route: 061
     Dates: start: 202112
  5. MECHLORETHAMINE HYDROCHLORIDE [Suspect]
     Active Substance: MECHLORETHAMINE HYDROCHLORIDE
     Dosage: UNK, ON BODY AREAS WHICH WAS WELL TOLERATED
     Route: 061
     Dates: start: 202202

REACTIONS (2)
  - Skin reaction [Recovered/Resolved]
  - Off label use [Unknown]

NARRATIVE: CASE EVENT DATE: 20210601
